FAERS Safety Report 7047526-2 (Version None)
Quarter: 2010Q4

REPORT INFORMATION
  Report Type: 
  Country: None (occurrence: None)
  Receive Date: 20101015
  Receipt Date: 20101004
  Transmission Date: 20110411
  Serious: Yes (Hospitalization)
  Sender: FDA-Public Use
  Company Number: DE-PFIZER INC-2010126594

PATIENT
  Age: 74 Year
  Sex: Female
  Weight: 84 kg

DRUGS (1)
  1. EXEMESTANE [Suspect]
     Indication: BREAST CANCER FEMALE
     Dosage: 25 MG, 1X/DAY
     Route: 048
     Dates: start: 20080902

REACTIONS (3)
  - CARDIAC FAILURE [None]
  - PLEURAL EFFUSION [None]
  - TACHYARRHYTHMIA [None]
